FAERS Safety Report 6645733-1 (Version None)
Quarter: 2010Q1

REPORT INFORMATION
  Report Type: 
  Country: None (occurrence: None)
  Receive Date: 20100323
  Receipt Date: 20100315
  Transmission Date: 20100710
  Serious: Yes (Other)
  Sender: FDA-Public Use
  Company Number: FR-ASTRAZENECA-2010SE11998

PATIENT
  Age: 75 Year
  Sex: Male

DRUGS (6)
  1. CRESTOR [Suspect]
     Indication: MYOCARDIAL ISCHAEMIA
     Route: 048
     Dates: end: 20091101
  2. CRESTOR [Suspect]
     Route: 048
     Dates: start: 20091101
  3. PREVISCAN [Suspect]
     Route: 048
     Dates: start: 20091101, end: 20100202
  4. CORDARONE [Suspect]
     Indication: ATRIAL FIBRILLATION
     Route: 048
     Dates: start: 20091101
  5. LEVOTHYROX [Concomitant]
  6. KARDEGIC [Concomitant]

REACTIONS (9)
  - ASTHENIA [None]
  - ATRIAL FIBRILLATION [None]
  - INTERNATIONAL NORMALISED RATIO INCREASED [None]
  - MALAISE [None]
  - MUSCLE SPASMS [None]
  - NAUSEA [None]
  - POLYDIPSIA [None]
  - RENAL FAILURE ACUTE [None]
  - VOMITING [None]
